FAERS Safety Report 13987226 (Version 2)
Quarter: 2017Q4

REPORT INFORMATION
  Report Type: Spontaneous
  Country: US (occurrence: US)
  Receive Date: 20170919
  Receipt Date: 20171109
  Transmission Date: 20180321
  Serious: Yes (Other)
  Sender: FDA-Public Use
  Company Number: US-BRACCO-2017US04195

PATIENT
  Sex: Female

DRUGS (5)
  1. MULTIHANCE [Suspect]
     Active Substance: GADOBENATE DIMEGLUMINE
     Indication: NUCLEAR MAGNETIC RESONANCE IMAGING
     Dosage: UNK, SINGLE
     Route: 042
     Dates: start: 2013, end: 2013
  2. MULTIHANCE [Suspect]
     Active Substance: GADOBENATE DIMEGLUMINE
     Indication: NUCLEAR MAGNETIC RESONANCE IMAGING
     Dosage: UNK, SINGLE
     Route: 042
     Dates: start: 2013, end: 2013
  3. PROHANCE [Suspect]
     Active Substance: GADOTERIDOL
     Indication: NUCLEAR MAGNETIC RESONANCE IMAGING
     Dosage: UNK, SINGLE
     Route: 042
  4. GADOLINIUM [Suspect]
     Active Substance: GADOLINIUM
     Indication: NUCLEAR MAGNETIC RESONANCE IMAGING
     Dosage: UNK, SINGLE
     Route: 042
  5. MULTIHANCE [Suspect]
     Active Substance: GADOBENATE DIMEGLUMINE
     Indication: NUCLEAR MAGNETIC RESONANCE IMAGING
     Dosage: UNK, SINGLE
     Route: 042
     Dates: start: 2013, end: 2013

REACTIONS (43)
  - Soft tissue disorder [Recovering/Resolving]
  - Confusional state [Recovering/Resolving]
  - Muscular weakness [Recovering/Resolving]
  - Tremor [Recovering/Resolving]
  - Body temperature decreased [Recovering/Resolving]
  - Tinnitus [Recovering/Resolving]
  - Injury [Unknown]
  - Arthralgia [Recovering/Resolving]
  - Lymphatic disorder [Recovering/Resolving]
  - General physical health deterioration [Recovering/Resolving]
  - Alopecia [Recovering/Resolving]
  - Hallucination, auditory [Recovering/Resolving]
  - Asthenia [Unknown]
  - Inflammation [Unknown]
  - Muscle twitching [Unknown]
  - Movement disorder [Unknown]
  - Fatigue [Recovering/Resolving]
  - Hypoaesthesia [Recovering/Resolving]
  - Emotional distress [Unknown]
  - Cognitive disorder [Unknown]
  - Osteoporosis [Recovering/Resolving]
  - Nervous system disorder [Recovering/Resolving]
  - Weight decreased [Recovering/Resolving]
  - Metabolic disorder [Recovering/Resolving]
  - Renal injury [Recovering/Resolving]
  - Chest injury [Unknown]
  - Gadolinium deposition disease [Recovering/Resolving]
  - Pain [Recovering/Resolving]
  - Loss of bladder sensation [Recovering/Resolving]
  - Hypoglycaemia [Recovering/Resolving]
  - Mass [Recovering/Resolving]
  - Insomnia [Recovering/Resolving]
  - Paraesthesia [Recovering/Resolving]
  - Muscle atrophy [Recovering/Resolving]
  - Burning sensation [Recovering/Resolving]
  - Dysphagia [Recovering/Resolving]
  - Anhedonia [Unknown]
  - Dyspnoea [Unknown]
  - Muscle spasms [Recovering/Resolving]
  - Rash generalised [Recovering/Resolving]
  - Abdominal discomfort [Unknown]
  - Loss of personal independence in daily activities [Unknown]
  - Mental status changes [Unknown]
